FAERS Safety Report 4394199-3 (Version None)
Quarter: 2004Q3

REPORT INFORMATION
  Report Type: 
  Country: None (occurrence: None)
  Receive Date: 20040707
  Receipt Date: 20040630
  Transmission Date: 20050211
  Serious: Yes (Death, Other)
  Sender: FDA-Public Use
  Company Number: 2004211421US

PATIENT
  Age: 46 Year
  Sex: Female
  Weight: 62.6 kg

DRUGS (3)
  1. XANAX [Suspect]
  2. METHADONE HCL [Suspect]
  3. PROPHOXYPHENE (DEXTROPROPOXYPHENE) [Suspect]

REACTIONS (9)
  - BRAIN OEDEMA [None]
  - DRUG TOXICITY [None]
  - GALLBLADDER DISORDER [None]
  - HYPERADRENOCORTICISM [None]
  - LUNG DISORDER [None]
  - PIGMENTATION DISORDER [None]
  - PULMONARY CONGESTION [None]
  - PULMONARY OEDEMA [None]
  - UTERINE POLYP [None]
